FAERS Safety Report 5280849-6 (Version None)
Quarter: 2007Q1

REPORT INFORMATION
  Report Type: 
  Country: None (occurrence: None)
  Receive Date: 20070329
  Receipt Date: 20070319
  Transmission Date: 20070707
  Serious: Yes (Life-Threatening)
  Sender: FDA-Public Use
  Company Number: FR-PFIZER INC-2007023223

PATIENT
  Sex: Male
  Weight: 61 kg

DRUGS (3)
  1. SALAZOPYRINE [Suspect]
     Indication: ENTEROCOLITIS HAEMORRHAGIC
     Dosage: FREQ:DAILY
     Route: 048
     Dates: start: 20070121, end: 20070204
  2. AMINOSALICYLATE SODIUM [Concomitant]
     Route: 054
     Dates: start: 20070121, end: 20070204
  3. ROWASA [Concomitant]
     Route: 048
     Dates: start: 20070121, end: 20070204

REACTIONS (4)
  - AGRANULOCYTOSIS [None]
  - CELLULITIS [None]
  - HYPERSENSITIVITY [None]
  - PYREXIA [None]
